FAERS Safety Report 23074590 (Version 3)
Quarter: 2023Q4

REPORT INFORMATION
  Report Type: Spontaneous
  Country: CZ (occurrence: CZ)
  Receive Date: 20231017
  Receipt Date: 20231124
  Transmission Date: 20240110
  Serious: Yes (Hospitalization, Other)
  Sender: FDA-Public Use
  Company Number: CZ-SA-SAC20231012001162

PATIENT
  Sex: Female

DRUGS (7)
  1. MYOZYME [Suspect]
     Active Substance: ALGLUCOSIDASE ALFA
     Dosage: 1100 MG(22 AMPOULES OF 50 MG EACH), QOW
     Route: 065
     Dates: start: 200812, end: 2022
  2. MYOZYME [Suspect]
     Active Substance: ALGLUCOSIDASE ALFA
     Dosage: 1100 MG(22 AMPOULES OF 50 MG EACH), QOW
     Route: 065
     Dates: start: 2022
  3. PFIZER-BIONTECH COVID-19 VACCINE [Concomitant]
     Active Substance: TOZINAMERAN
     Indication: COVID-19 immunisation
     Dosage: UNK, FIRST DOSE
     Dates: start: 20210424, end: 20210424
  4. PFIZER-BIONTECH COVID-19 VACCINE [Concomitant]
     Active Substance: TOZINAMERAN
     Dosage: UNK, SECOND DOSE
     Dates: start: 20210605, end: 20210605
  5. PFIZER-BIONTECH COVID-19 VACCINE [Concomitant]
     Active Substance: TOZINAMERAN
     Dosage: UNK, THIRD DOSE
     Dates: start: 20220224, end: 20220224
  6. CALCIUM\CHOLECALCIFEROL [Concomitant]
     Active Substance: CALCIUM\CHOLECALCIFEROL
     Dosage: 1 DF, QD
     Dates: start: 20220511, end: 20220525
  7. PROVERA [Concomitant]
     Active Substance: MEDROXYPROGESTERONE ACETATE
     Indication: Menstruation irregular
     Dosage: DURING THE CYCLE DUE TO IRREGULAR MENSTRUATION

REACTIONS (33)
  - Abortion spontaneous [Unknown]
  - Maternal exposure during pregnancy [Unknown]
  - Respiratory distress [Unknown]
  - Secretion discharge [Unknown]
  - Weight decreased [Recovering/Resolving]
  - COVID-19 [Unknown]
  - Fatigue [Unknown]
  - Periodontitis [Unknown]
  - Pulpitis dental [Unknown]
  - Sciatica [Unknown]
  - Pain [Unknown]
  - Back pain [Unknown]
  - Pain in extremity [Unknown]
  - Decreased appetite [Unknown]
  - Heavy menstrual bleeding [Unknown]
  - Seasonal allergy [Unknown]
  - Rhinitis [Unknown]
  - Eye discharge [Unknown]
  - Mucosal inflammation [Unknown]
  - Swelling of eyelid [Unknown]
  - Bacteriuria [Recovered/Resolved]
  - Dysuria [Recovered/Resolved]
  - Abdominal pain lower [Recovered/Resolved]
  - Back pain [Recovered/Resolved]
  - Urinary tract infection [Recovered/Resolved]
  - Weight fluctuation [Unknown]
  - Muscular weakness [Unknown]
  - Cough [Unknown]
  - Musculoskeletal chest pain [Unknown]
  - Pyrexia [Unknown]
  - Body temperature increased [Unknown]
  - Hyperhidrosis [Unknown]
  - Intentional dose omission [Unknown]

NARRATIVE: CASE EVENT DATE: 20170101
